FAERS Safety Report 7110949-7 (Version None)
Quarter: 2010Q4

REPORT INFORMATION
  Report Type: 
  Country: None (occurrence: None)
  Receive Date: 20101118
  Receipt Date: 20091008
  Transmission Date: 20110411
  Serious: No
  Sender: FDA-Public Use
  Company Number: US-TEVA-211759USA

PATIENT
  Sex: Male
  Weight: 90.8 kg

DRUGS (1)
  1. ALBUTEROL SULFATE AUTOHALER [Suspect]
     Indication: ASTHMA EXERCISE INDUCED
     Route: 055

REACTIONS (5)
  - DIZZINESS [None]
  - FACE INJURY [None]
  - FALL [None]
  - LIP INJURY [None]
  - SYNCOPE [None]
